FAERS Safety Report 12013165 (Version 3)
Quarter: 2016Q1

REPORT INFORMATION
  Report Type: Spontaneous
  Country: BE (occurrence: BE)
  Receive Date: 20160205
  Receipt Date: 20160314
  Transmission Date: 20160526
  Serious: Yes (Other)
  Sender: FDA-Public Use
  Company Number: BE-REGENERON PHARMACEUTICALS, INC.-2016-11571

PATIENT

DRUGS (7)
  1. ALLOPURINOL. [Concomitant]
     Active Substance: ALLOPURINOL
  2. EYLEA [Suspect]
     Active Substance: AFLIBERCEPT
     Dosage: 3 OF 4 INJECTIONS
     Dates: start: 20150602
  3. EYLEA [Suspect]
     Active Substance: AFLIBERCEPT
     Dosage: 2 OF 4 INJECTIONS
     Dates: start: 20150505
  4. EYLEA [Suspect]
     Active Substance: AFLIBERCEPT
     Dosage: 4 OF 4 INJECTIONS
     Dates: start: 20151026
  5. COAPROVEL [Concomitant]
     Active Substance: HYDROCHLOROTHIAZIDE\IRBESARTAN
  6. EYLEA [Suspect]
     Active Substance: AFLIBERCEPT
     Indication: AGE-RELATED MACULAR DEGENERATION
     Dosage: 1 OF 4 INJECTIONS
     Dates: start: 20150403
  7. SIMVASTATINE [Concomitant]
     Active Substance: SIMVASTATIN

REACTIONS (4)
  - Visual impairment [Unknown]
  - Off label use [Unknown]
  - Visual acuity reduced [Unknown]
  - Retinal degeneration [Unknown]

NARRATIVE: CASE EVENT DATE: 2015
